FAERS Safety Report 4595783-4 (Version None)
Quarter: 2005Q1

REPORT INFORMATION
  Report Type: 
  Country: None (occurrence: None)
  Receive Date: 20050224
  Receipt Date: 20050210
  Transmission Date: 20050727
  Serious: Yes (Death, Hospitalization)
  Sender: FDA-Public Use
  Company Number: 2005SE00635

PATIENT
  Age: 76 Year
  Sex: Female

DRUGS (9)
  1. BLOPRESS [Suspect]
     Indication: HYPERTENSION
     Dosage: 1 DF QD PO
     Route: 048
  2. OMEPRAL [Suspect]
     Dosage: 1 DF QD PO
     Route: 048
  3. FURUSEMIDE [Concomitant]
  4. GRANDAXIN [Concomitant]
  5. SOLANAX [Concomitant]
  6. MILLIS TAPE [Concomitant]
  7. HOKUNALIN [Concomitant]
  8. INTEBAN [Concomitant]
  9. TELEMINSOFT [Concomitant]

REACTIONS (6)
  - ARRHYTHMIA [None]
  - BLOOD PRESSURE DECREASED [None]
  - BRADYCARDIA [None]
  - CARDIAC ARREST [None]
  - CHEST PAIN [None]
  - HYPERKALAEMIA [None]
